FAERS Safety Report 25049675 (Version 1)
Quarter: 2025Q1

REPORT INFORMATION
  Report Type: Spontaneous
  Country: GB (occurrence: GB)
  Receive Date: 20250307
  Receipt Date: 20250307
  Transmission Date: 20250409
  Serious: Yes (Other)
  Sender: AUROBINDO
  Company Number: GB-MHRA-MED-202502180924210500-HCLYW

PATIENT
  Age: 54 Year
  Sex: Female
  Weight: 77 kg

DRUGS (1)
  1. CIPROFLOXACIN [Suspect]
     Active Substance: CIPROFLOXACIN
     Indication: Urinary tract pain
     Dosage: 750 MILLIGRAM, TWO TIMES A DAY (750MG TWICE A DAY)
     Route: 065
     Dates: start: 20250211, end: 20250217

REACTIONS (4)
  - Medication error [Unknown]
  - Pain in extremity [Unknown]
  - Gait disturbance [Unknown]
  - Tendonitis [Recovering/Resolving]

NARRATIVE: CASE EVENT DATE: 20250215
